FAERS Safety Report 21597505 (Version 27)
Quarter: 2025Q1

REPORT INFORMATION
  Report Type: Report from Study
  Country: US (occurrence: US)
  Receive Date: 20221115
  Receipt Date: 20250304
  Transmission Date: 20250409
  Serious: Yes (Hospitalization, Other)
  Sender: TAKEDA
  Company Number: US-TAKEDA-2022TUS085072

PATIENT
  Age: 6 Year
  Sex: Male

DRUGS (10)
  1. IDURSULFASE [Suspect]
     Active Substance: IDURSULFASE
     Indication: Haemophagocytic lymphohistiocytosis
     Dosage: 6 MILLIGRAM, 1/WEEK
     Dates: start: 20221018
  2. IDURSULFASE [Suspect]
     Active Substance: IDURSULFASE
     Indication: Mucopolysaccharidosis II
     Dosage: 12 MILLIGRAM, 1/WEEK
     Dates: start: 202210
  3. IDURSULFASE [Suspect]
     Active Substance: IDURSULFASE
     Dosage: 18 MILLIGRAM, 1/WEEK
  4. METHYLPREDNISOLONE [Suspect]
     Active Substance: METHYLPREDNISOLONE
     Indication: Product used for unknown indication
  5. LIDOCAINE [Suspect]
     Active Substance: LIDOCAINE
     Indication: Product used for unknown indication
  6. DIPHENHYDRAMINE [Concomitant]
     Active Substance: DIPHENHYDRAMINE
  7. LIDOCAINE\PRILOCAINE [Concomitant]
     Active Substance: LIDOCAINE\PRILOCAINE
  8. METHYLPREDNISOLONE SODIUM SUCCINATE [Concomitant]
     Active Substance: METHYLPREDNISOLONE SODIUM SUCCINATE
  9. HEPARIN [Concomitant]
     Active Substance: HEPARIN SODIUM
  10. EPINEPHRINE [Concomitant]
     Active Substance: EPINEPHRINE

REACTIONS (21)
  - COVID-19 [Unknown]
  - Appendix disorder [Unknown]
  - Abdominal pain upper [Unknown]
  - Swelling face [Unknown]
  - Lip swelling [Recovering/Resolving]
  - Illness [Unknown]
  - Influenza [Unknown]
  - Cough [Recovering/Resolving]
  - Vomiting [Unknown]
  - Pyrexia [Recovered/Resolved]
  - Nasopharyngitis [Unknown]
  - Limb injury [Unknown]
  - Malaise [Unknown]
  - Poor quality sleep [Unknown]
  - Pain [Unknown]
  - Weight increased [Unknown]
  - Product dose omission issue [Recovering/Resolving]
  - Inappropriate schedule of product administration [Unknown]
  - Product use in unapproved indication [Unknown]
  - Dermatitis contact [Unknown]
  - Diarrhoea [Unknown]

NARRATIVE: CASE EVENT DATE: 20221018
